FAERS Safety Report 6018707-1 (Version None)
Quarter: 2008Q4

REPORT INFORMATION
  Report Type: 
  Country: None (occurrence: None)
  Receive Date: 20081223
  Receipt Date: 20081210
  Transmission Date: 20090506
  Serious: Yes (Other)
  Sender: FDA-Public Use
  Company Number: GB-MERCK-0812GBR00054

PATIENT
  Age: 68 Year
  Sex: Female

DRUGS (3)
  1. [THERAPY UNSPECIFIED] [Suspect]
     Indication: MULTIPLE MYELOMA
     Route: 065
  2. BORTEZOMIB [Suspect]
     Indication: MULTIPLE MYELOMA
     Route: 065
  3. BORTEZOMIB [Suspect]
     Route: 065

REACTIONS (3)
  - DIZZINESS [None]
  - NEUROPATHY PERIPHERAL [None]
  - SLEEP DISORDER [None]
